FAERS Safety Report 11284768 (Version 1)
Quarter: 2015Q3

REPORT INFORMATION
  Report Type: Report from Study
  Country: US (occurrence: US)
  Receive Date: 20150720
  Receipt Date: 20150720
  Transmission Date: 20151125
  Serious: Yes (Other)
  Sender: FDA-Public Use
  Company Number: US-ELI_LILLY_AND_COMPANY-US201408001762

PATIENT
  Age: 5 Year
  Sex: Female
  Weight: 22.2 kg

DRUGS (3)
  1. SOMATROPIN [Suspect]
     Active Substance: SOMATROPIN
     Indication: TURNER^S SYNDROME
     Dosage: 0.7 MG, UNKNOWN
     Route: 065
     Dates: start: 2012, end: 20130809
  2. SOMATROPIN [Suspect]
     Active Substance: SOMATROPIN
     Dosage: 0.2 MG, UNKNOWN
     Route: 065
  3. SOMATROPIN [Suspect]
     Active Substance: SOMATROPIN
     Dosage: UNK UNK, UNKNOWN
     Route: 058
     Dates: start: 201407

REACTIONS (4)
  - Vision blurred [Recovering/Resolving]
  - Drug dose omission [Unknown]
  - Papilloedema [Recovering/Resolving]
  - Brain oedema [Recovering/Resolving]

NARRATIVE: CASE EVENT DATE: 201304
